FAERS Safety Report 18381738 (Version 1)
Quarter: 2020Q4

REPORT INFORMATION
  Report Type: Spontaneous
  Country: US (occurrence: US)
  Receive Date: 20201013
  Receipt Date: 20201013
  Transmission Date: 20210114
  Serious: Yes (Hospitalization)
  Sender: FDA-Public Use
  Company Number: None

PATIENT
  Age: 18 Year
  Sex: Female

DRUGS (10)
  1. AZITHROMYCIN ANHYDROUS. [Concomitant]
     Active Substance: AZITHROMYCIN ANHYDROUS
  2. ACTEMRA ACTPEN [Suspect]
     Active Substance: TOCILIZUMAB
     Indication: JUVENILE IDIOPATHIC ARTHRITIS
     Dosage: 1 PEN Q14D SQ
     Route: 058
     Dates: start: 20200124
  3. LANTUS SOLOS [Concomitant]
  4. SUMATRIPTAN. [Concomitant]
     Active Substance: SUMATRIPTAN
  5. CREON [Concomitant]
     Active Substance: PANCRELIPASE AMYLASE\PANCRELIPASE LIPASE\PANCRELIPASE PROTEASE
  6. CAYSTON [Concomitant]
     Active Substance: AZTREONAM
  7. CELECOXIB. [Concomitant]
     Active Substance: CELECOXIB
  8. INSULIN ASPA FLEXPEN [Concomitant]
  9. PULMOZYME [Concomitant]
     Active Substance: DORNASE ALFA
  10. KALYDECO [Concomitant]
     Active Substance: IVACAFTOR

REACTIONS (1)
  - Pneumonia [None]

NARRATIVE: CASE EVENT DATE: 20200917
